FAERS Safety Report 7302496-4 (Version None)
Quarter: 2011Q1

REPORT INFORMATION
  Report Type: 
  Country: None (occurrence: None)
  Receive Date: 20110218
  Receipt Date: 20110215
  Transmission Date: 20110831
  Serious: Yes (Other)
  Sender: FDA-Public Use
  Company Number: US-PFIZER INC-2010140880

PATIENT
  Age: 42 Year
  Sex: Female
  Weight: 58.957 kg

DRUGS (2)
  1. JANUVIA [Concomitant]
     Dosage: 100 MG, 1X/DAY
  2. CHANTIX [Suspect]
     Indication: SMOKING CESSATION THERAPY
     Dosage: 0.5 MG TABLET, 1 MG, 2X/DAY
     Dates: start: 20091101, end: 20100201

REACTIONS (2)
  - DIABETES MELLITUS INADEQUATE CONTROL [None]
  - WEIGHT INCREASED [None]
